FAERS Safety Report 14220238 (Version 1)
Quarter: 2017Q4

REPORT INFORMATION
  Report Type: Spontaneous
  Country: US (occurrence: US)
  Receive Date: 20171123
  Receipt Date: 20171123
  Transmission Date: 20180321
  Serious: No
  Sender: FDA-Public Use
  Company Number: US-JNJFOC-20171033491

PATIENT
  Age: 25 Year
  Sex: Female
  Weight: 65.32 kg

DRUGS (2)
  1. TOPAMAX [Suspect]
     Active Substance: TOPIRAMATE
     Indication: MIGRAINE
     Route: 048
     Dates: start: 2016, end: 201710
  2. TOPAMAX [Suspect]
     Active Substance: TOPIRAMATE
     Indication: MIGRAINE
     Route: 048
     Dates: start: 201710

REACTIONS (2)
  - Migraine [Unknown]
  - Menstruation delayed [Not Recovered/Not Resolved]

NARRATIVE: CASE EVENT DATE: 201710
